FAERS Safety Report 6234704-5 (Version None)
Quarter: 2009Q2

REPORT INFORMATION
  Report Type: 
  Country: None (occurrence: None)
  Receive Date: 20090615
  Receipt Date: 20090326
  Transmission Date: 20091009
  Serious: No
  Sender: FDA-Public Use
  Company Number: DSA_33418_2009

PATIENT
  Age: 80 Year
  Sex: Female

DRUGS (10)
  1. XENAZINE [Suspect]
     Indication: MOVEMENT DISORDER
     Dosage: (25 MG IN AM, 12.5 MG AT NOON, AND 25 MG AT NIGHT. TOTAL DAILY DOSE 62.5 MG.)
     Dates: start: 20070101, end: 20090101
  2. XENAZINE [Suspect]
     Indication: MOVEMENT DISORDER
     Dosage: (25 MG IN AM, 12.5 MG AT NOON, AND 25 MG AT NIGHT. TOTAL DAILY DOSE 62.5 MG.)
     Dates: start: 20090101
  3. METFORMIN [Concomitant]
  4. CHLORACON [Concomitant]
  5. FUROSEMIDE INTENSOL [Concomitant]
  6. ALPRAZOLAM [Concomitant]
  7. CLONIDINE [Concomitant]
  8. BENICAR [Concomitant]
  9. HYDRALAZINE HCL [Concomitant]
  10. DIOVAN /01319601/ [Concomitant]

REACTIONS (2)
  - PRODUCT QUALITY ISSUE [None]
  - TREMOR [None]
